FAERS Safety Report 9047213 (Version 1)
Quarter: 2013Q1

REPORT INFORMATION
  Report Type: Report from Study
  Country: US (occurrence: US)
  Receive Date: 20130130
  Receipt Date: 20130130
  Transmission Date: 20140127
  Serious: No
  Sender: FDA-Public Use
  Company Number: US-ABBOTT-12P-163-0976324-00

PATIENT
  Age: 33 Year
  Sex: Female

DRUGS (9)
  1. HUMIRA [Suspect]
     Indication: ANKYLOSING SPONDYLITIS
  2. DAYPRO [Concomitant]
     Indication: ANKYLOSING SPONDYLITIS
  3. PAMELOR [Concomitant]
     Indication: ANTIDEPRESSANT THERAPY
  4. ZOLOFT [Concomitant]
     Indication: ANTIDEPRESSANT THERAPY
  5. ULTRAM [Concomitant]
     Indication: PAIN
  6. OXYTROL [Concomitant]
     Indication: PAIN MANAGEMENT
  7. SKELAXIN [Concomitant]
     Indication: PAIN MANAGEMENT
     Dosage: UP TO 3 TIMES A DAY
  8. RELPAX [Concomitant]
     Indication: MIGRAINE
  9. ELMIRON [Concomitant]
     Indication: CYSTITIS INTERSTITIAL

REACTIONS (1)
  - Injection site pain [Recovering/Resolving]
